FAERS Safety Report 5692248-3 (Version None)
Quarter: 2008Q2

REPORT INFORMATION
  Report Type: 
  Country: None (occurrence: None)
  Receive Date: 20080328
  Receipt Date: 20070312
  Transmission Date: 20081010
  Serious: Yes (Hospitalization, Other)
  Sender: FDA-Public Use
  Company Number: PHEH2007US03131

PATIENT
  Age: 68 Year
  Sex: Female
  Weight: 69.4 kg

DRUGS (9)
  1. VIVELLE-DOT [Suspect]
     Indication: HORMONE REPLACEMENT THERAPY
     Dosage: TRANSDERMAL
     Route: 062
  2. PROVERA [Suspect]
     Indication: HORMONE REPLACEMENT THERAPY
     Dates: start: 19850101, end: 19990101
  3. PREMPRO [Suspect]
     Indication: HORMONE REPLACEMENT THERAPY
     Dates: start: 19990101, end: 20030301
  4. PREMPRO [Suspect]
     Indication: HORMONE REPLACEMENT THERAPY
     Dates: start: 19990101, end: 20030301
  5. ASPIRIN [Concomitant]
  6. FLOVENT [Concomitant]
  7. PAXIL (PARXOETINE HYDROCHLORIDE) [Concomitant]
  8. LEVOXYL [Concomitant]
  9. FOSAMAX [Concomitant]

REACTIONS (10)
  - BREAST CALCIFICATIONS [None]
  - BREAST CANCER IN SITU [None]
  - BREAST HYPERPLASIA [None]
  - BREAST RECONSTRUCTION [None]
  - HYPERLIPIDAEMIA [None]
  - HYPERTENSION [None]
  - INJURY [None]
  - MAMMOGRAM ABNORMAL [None]
  - MASTECTOMY [None]
  - RADIOTHERAPY [None]
